FAERS Safety Report 9060566 (Version 1)
Quarter: 2013Q1

REPORT INFORMATION
  Report Type: Spontaneous
  Country: IN (occurrence: IN)
  Receive Date: 20130212
  Receipt Date: 20130212
  Transmission Date: 20140127
  Serious: Yes (Hospitalization)
  Sender: FDA-Public Use
  Company Number: IN-B.I. PHARMACEUTICALS,INC./RIDGEFIELD-2013-BI-02720GD

PATIENT
  Age: 40 Year
  Sex: Male

DRUGS (6)
  1. NEVIRAPINE [Suspect]
     Indication: HIV INFECTION
     Dates: start: 201003
  2. LAMIVUDINE [Suspect]
     Indication: HIV INFECTION
     Dates: start: 201003, end: 20100625
  3. LAMIVUDINE [Suspect]
     Dates: start: 201007
  4. STAVUDINE [Suspect]
     Indication: HIV INFECTION
     Dates: start: 201003, end: 20100625
  5. STAVUDINE [Suspect]
     Dates: start: 201007
  6. COTRIMOXAZOLE [Concomitant]
     Indication: PROPHYLAXIS
     Dosage: SULFAMETHOXAZOLE/TRIMETHOPRIM 800 MG/160 MG
     Dates: start: 201003

REACTIONS (11)
  - Immune reconstitution inflammatory syndrome [Unknown]
  - Meningitis cryptococcal [Unknown]
  - Vomiting [Unknown]
  - Pyrexia [Unknown]
  - Abdominal pain upper [Unknown]
  - Cytomegalovirus chorioretinitis [Unknown]
  - Visual acuity reduced [Unknown]
  - Headache [Recovered/Resolved]
  - Hydrocephalus [Unknown]
  - Toxoplasmosis [Unknown]
  - Anaemia [Unknown]
